FAERS Safety Report 18942476 (Version 1)
Quarter: 2021Q1

REPORT INFORMATION
  Report Type: Report from Study
  Country: US (occurrence: US)
  Receive Date: 20210225
  Receipt Date: 20210225
  Transmission Date: 20210420
  Serious: No
  Sender: FDA-Public Use
  Company Number: US-AGIOS-2102US02527

PATIENT

DRUGS (3)
  1. AFINITOR [Concomitant]
     Active Substance: EVEROLIMUS
  2. TIBSOVO [Suspect]
     Active Substance: IVOSIDENIB
     Indication: BRAIN NEOPLASM MALIGNANT
     Dosage: 250 MILLIGRAM, 2 TABLETS (500 MG) DAILY
     Route: 048
  3. LEVETIRACETAM. [Concomitant]
     Active Substance: LEVETIRACETAM

REACTIONS (2)
  - Product dose omission issue [Unknown]
  - Off label use [Unknown]
